FAERS Safety Report 23609266 (Version 1)
Quarter: 2024Q1

REPORT INFORMATION
  Report Type: Report from Study
  Country: US (occurrence: US)
  Receive Date: 20240308
  Receipt Date: 20240308
  Transmission Date: 20240410
  Serious: Yes (Other)
  Sender: FDA-Public Use
  Company Number: US-SA-SAC20240305001286

PATIENT
  Sex: Female

DRUGS (1)
  1. AGALSIDASE BETA [Suspect]
     Active Substance: AGALSIDASE BETA
     Indication: Fabry^s disease
     Dosage: 80 (UNITS NOT REPORTED), QOW
     Route: 042
     Dates: start: 20040609

REACTIONS (5)
  - Renal impairment [Recovered/Resolved]
  - Weight increased [Recovered/Resolved]
  - Nervousness [Unknown]
  - Lip swelling [Unknown]
  - Malaise [Unknown]
